FAERS Safety Report 16028728 (Version 8)
Quarter: 2019Q3

REPORT INFORMATION
  Report Type: Spontaneous
  Country: US (occurrence: US)
  Receive Date: 20190304
  Receipt Date: 20190814
  Transmission Date: 20191004
  Serious: Yes (Other)
  Sender: FDA-Public Use
  Company Number: US-SA-2019SA059190

PATIENT
  Age: 58 Year
  Sex: Female

DRUGS (2)
  1. LEMTRADA [Suspect]
     Active Substance: ALEMTUZUMAB
     Dosage: 12 MG, UNK
     Route: 041
     Dates: start: 2016
  2. LEMTRADA [Suspect]
     Active Substance: ALEMTUZUMAB
     Dosage: 12 MG, UNK
     Route: 041
     Dates: start: 2017

REACTIONS (6)
  - Haemolytic anaemia [Unknown]
  - Hypotension [Unknown]
  - Anaemia [Unknown]
  - Laboratory test abnormal [Unknown]
  - Red blood cell count decreased [Unknown]
  - Neutropenia [Unknown]
